FAERS Safety Report 23038378 (Version 1)
Quarter: 2023Q4

REPORT INFORMATION
  Report Type: Spontaneous
  Country: GB (occurrence: GB)
  Receive Date: 20231006
  Receipt Date: 20231006
  Transmission Date: 20240110
  Serious: Yes (Other)
  Sender: FDA-Public Use
  Company Number: GB-MYLANLABS-2023M1105224

PATIENT
  Age: 23 Year
  Sex: Female

DRUGS (2)
  1. RIFAMPIN [Suspect]
     Active Substance: RIFAMPIN
     Indication: Tuberculosis
     Dosage: UNK
     Route: 065
  2. ISONIAZID [Suspect]
     Active Substance: ISONIAZID
     Indication: Tuberculosis
     Dosage: UNK
     Route: 065

REACTIONS (6)
  - Type I hypersensitivity [Unknown]
  - Rash pruritic [Unknown]
  - Pruritus [Unknown]
  - Erythema [Unknown]
  - Swelling [Unknown]
  - Type IV hypersensitivity reaction [Unknown]
